FAERS Safety Report 9917645 (Version 1)
Quarter: 2014Q1

REPORT INFORMATION
  Report Type: Report from Study
  Country: US (occurrence: US)
  Receive Date: 20140221
  Receipt Date: 20140221
  Transmission Date: 20141002
  Serious: Yes (Hospitalization, Other)
  Sender: FDA-Public Use
  Company Number: US-ABBVIE-14P-163-1202564-00

PATIENT
  Age: 43 Year
  Sex: Male

DRUGS (2)
  1. HUMIRA [Suspect]
     Indication: PSORIASIS
  2. MULTIPLE TOPICALS [Concomitant]
     Indication: PSORIASIS

REACTIONS (7)
  - Joint swelling [Not Recovered/Not Resolved]
  - Psoriatic arthropathy [Unknown]
  - Headache [Unknown]
  - Sensory disturbance [Unknown]
  - Arthritis infective [Unknown]
  - Psoriasis [Unknown]
  - Psoriasis [Unknown]
